FAERS Safety Report 9690779 (Version 2)
Quarter: 2013Q4

REPORT INFORMATION
  Report Type: Spontaneous
  Country: BR (occurrence: BR)
  Receive Date: 20131115
  Receipt Date: 20131115
  Transmission Date: 20140711
  Serious: Yes (Hospitalization, Other)
  Sender: FDA-Public Use
  Company Number: BR-PFIZER INC-2012229234

PATIENT
  Age: 63 Year
  Sex: Male
  Weight: 68 kg

DRUGS (8)
  1. SUTENT [Suspect]
     Indication: GASTROINTESTINAL STROMAL CANCER
     Dosage: 50 MG, CYCLIC (4X2), ONCE A DAY
     Route: 048
     Dates: start: 20120819
  2. LOSARTAN [Concomitant]
     Dosage: 100 MG, 2X/DAY
  3. HYDROCHLOROTHIAZIDE [Concomitant]
     Dosage: UNK
  4. FUROSEMIDE [Concomitant]
     Dosage: UNK
  5. DRAMIN /BRA/ [Concomitant]
     Dosage: UNK, AS NEEDED
  6. BUSCOPAN [Concomitant]
     Dosage: UNK
  7. OMEPRAZOL [Concomitant]
     Dosage: UNK
  8. PROPRANOLOL [Concomitant]
     Indication: BLOOD PRESSURE
     Dosage: UNK
     Dates: end: 20121005

REACTIONS (14)
  - Constipation [Not Recovered/Not Resolved]
  - Blood pressure increased [Unknown]
  - Ascites [Unknown]
  - Nausea [Unknown]
  - Gingival inflammation [Not Recovered/Not Resolved]
  - Tooth discolouration [Not Recovered/Not Resolved]
  - Gingival discolouration [Not Recovered/Not Resolved]
  - Yellow skin [Unknown]
  - Weight decreased [Unknown]
  - Asthenia [Unknown]
  - Pain in extremity [Unknown]
  - Disease progression [Unknown]
  - Gastrointestinal stromal cancer [Unknown]
  - Abdominal distension [Unknown]
